FAERS Safety Report 9570903 (Version 1)
Quarter: 2013Q3

REPORT INFORMATION
  Report Type: Spontaneous
  Country: US (occurrence: None)
  Receive Date: 20130927
  Receipt Date: 20130927
  Transmission Date: 20140515
  Serious: No
  Sender: FDA-Public Use
  Company Number: None

PATIENT
  Sex: Female
  Weight: 108.86 kg

DRUGS (1)
  1. ACTIVELLA [Suspect]

REACTIONS (6)
  - Product substitution issue [None]
  - Abdominal distension [None]
  - Nausea [None]
  - Vomiting [None]
  - Back pain [None]
  - Abdominal pain [None]
